FAERS Safety Report 26045878 (Version 1)
Quarter: 2025Q4

REPORT INFORMATION
  Report Type: Spontaneous
  Country: GB (occurrence: GB)
  Receive Date: 20251114
  Receipt Date: 20251114
  Transmission Date: 20260117
  Serious: Yes (Other)
  Sender: RANBAXY
  Company Number: GB-SUN PHARMACEUTICAL INDUSTRIES INC-2025R1-533276

PATIENT
  Age: 35 Year
  Sex: Female

DRUGS (5)
  1. FEXOFENADINE [Suspect]
     Active Substance: FEXOFENADINE HYDROCHLORIDE
     Indication: Mastocytosis
     Dosage: UNK
     Route: 065
  2. PREDNISOLONE [Suspect]
     Active Substance: PREDNISOLONE
     Indication: Mastocytosis
     Dosage: UNK
     Route: 065
  3. PROPRANOLOL [Suspect]
     Active Substance: PROPRANOLOL HYDROCHLORIDE
     Indication: Syncope
     Dosage: UNK
     Route: 065
  4. EPIPEN [Suspect]
     Active Substance: EPINEPHRINE
     Indication: Mastocytosis
     Dosage: UNK
     Route: 065
  5. MIDODRINE [Suspect]
     Active Substance: MIDODRINE
     Indication: Syncope
     Dosage: UNK
     Route: 065

REACTIONS (2)
  - Therapy non-responder [Unknown]
  - Exposure during pregnancy [Unknown]
